FAERS Safety Report 23088570 (Version 1)
Quarter: 2023Q4

REPORT INFORMATION
  Report Type: Spontaneous
  Country: US (occurrence: US)
  Receive Date: 20231020
  Receipt Date: 20231020
  Transmission Date: 20240110
  Serious: Yes (Hospitalization)
  Sender: FDA-Public Use
  Company Number: US-drreddys-SPO/USA/23/0179748

PATIENT
  Age: 67 Year
  Sex: Male

DRUGS (1)
  1. CLOZAPINE [Suspect]
     Active Substance: CLOZAPINE
     Indication: Product used for unknown indication

REACTIONS (11)
  - Hospitalisation [Unknown]
  - White blood cell count increased [Unknown]
  - Red blood cell count decreased [Unknown]
  - Haemoglobin decreased [Unknown]
  - Haematocrit decreased [Unknown]
  - Mean cell volume decreased [Unknown]
  - Red cell distribution width increased [Unknown]
  - Neutrophilia [Unknown]
  - Immature granulocyte count increased [Unknown]
  - Neutrophil percentage increased [Unknown]
  - Lymphocyte percentage decreased [Unknown]

NARRATIVE: CASE EVENT DATE: 20211201
